FAERS Safety Report 18017908 (Version 1)
Quarter: 2020Q3

REPORT INFORMATION
  Report Type: Report from Study
  Country: None (occurrence: US)
  Receive Date: 20200714
  Receipt Date: 20200714
  Transmission Date: 20201103
  Serious: Yes (Hospitalization, Other)
  Sender: FDA-Public Use
  Company Number: US-ABBVIE-20K-163-3475867-00

PATIENT
  Sex: Female

DRUGS (1)
  1. HUMIRA [Suspect]
     Active Substance: ADALIMUMAB
     Indication: PRODUCT USED FOR UNKNOWN INDICATION
     Dosage: CITRATE FREE
     Route: 058
     Dates: end: 20200703

REACTIONS (5)
  - Pulmonary thrombosis [Unknown]
  - Thrombosis [Recovering/Resolving]
  - Intracardiac thrombus [Unknown]
  - Thrombosis [Unknown]
  - Dyspnoea [Unknown]
